FAERS Safety Report 5458507-4 (Version None)
Quarter: 2007Q3

REPORT INFORMATION
  Report Type: 
  Country: None (occurrence: None)
  Receive Date: 20070919
  Receipt Date: 20070423
  Transmission Date: 20080115
  Serious: No
  Sender: FDA-Public Use
  Company Number: US-ASTRAZENECA-2007UW06452

PATIENT
  Sex: Male

DRUGS (3)
  1. SEROQUEL [Suspect]
     Indication: ANXIETY
     Route: 048
     Dates: start: 20070101
  2. RISPERDAL [Concomitant]
  3. WELLBUTRIN [Concomitant]

REACTIONS (3)
  - ERECTILE DYSFUNCTION [None]
  - FEELING ABNORMAL [None]
  - LIBIDO DECREASED [None]
